FAERS Safety Report 8046038-7 (Version None)
Quarter: 2012Q1

REPORT INFORMATION
  Report Type: 
  Country: None (occurrence: None)
  Receive Date: 20120113
  Receipt Date: 20120110
  Transmission Date: 20120608
  Serious: Yes (Other)
  Sender: FDA-Public Use
  Company Number: FR-PFIZER INC-2011306303

PATIENT
  Age: 86 Year
  Sex: Male

DRUGS (6)
  1. NEURONTIN [Suspect]
     Indication: POST HERPETIC NEURALGIA
     Dosage: 600 MG DAILY
     Dates: start: 20110106, end: 20110705
  2. NEURONTIN [Suspect]
     Dosage: 2400 MG DAILY
     Dates: start: 20110706
  3. VALACYCLOVIR HYDROCHLORIDE [Suspect]
     Indication: HERPES ZOSTER OPHTHALMIC
     Dosage: 3 G DAILY
     Dates: start: 20111106, end: 20111113
  4. ZOCOR [Concomitant]
  5. PROSCAR [Concomitant]
  6. ACEBUTOLOL [Concomitant]

REACTIONS (4)
  - PRURITUS [None]
  - DERMATITIS EXFOLIATIVE [None]
  - RASH [None]
  - ERYTHEMA [None]
